FAERS Safety Report 25890290 (Version 1)
Quarter: 2025Q4

REPORT INFORMATION
  Report Type: Spontaneous
  Country: US (occurrence: None)
  Receive Date: 20251003
  Receipt Date: 20251003
  Transmission Date: 20260118
  Serious: Yes (Life-Threatening, Hospitalization, Disabling)
  Sender: FDA-CTU
  Company Number: None

PATIENT
  Age: 14 Year
  Sex: Female
  Weight: 58.97 kg

DRUGS (2)
  1. MIRENA [Suspect]
     Active Substance: LEVONORGESTREL
  2. women multi vitiman [Concomitant]

REACTIONS (12)
  - Contraceptive implant [None]
  - Mental impairment [None]
  - Panic attack [None]
  - Irritable bowel syndrome [None]
  - Drug ineffective [None]
  - Amenorrhoea [None]
  - Anxiety [None]
  - Anger [None]
  - Feeling guilty [None]
  - Fear [None]
  - Dysmenorrhoea [None]
  - Complication associated with device [None]

NARRATIVE: CASE EVENT DATE: 20210503
